FAERS Safety Report 4314530-4 (Version None)
Quarter: 2004Q1

REPORT INFORMATION
  Report Type: 
  Country: None (occurrence: None)
  Receive Date: 20040308
  Receipt Date: 20040226
  Transmission Date: 20041129
  Serious: Yes (Hospitalization)
  Sender: FDA-Public Use
  Company Number: 2004198539CA

PATIENT
  Age: 46 Year
  Sex: Female
  Weight: 64 kg

DRUGS (6)
  1. PHARMORUBICIN PFS(EPIRUBICIN HYDROCHLORIDE)SOLUTION, STERILE [Suspect]
     Indication: CERVIX CARCINOMA
     Dosage: 83 MG, EVERY 21 DAYS, CYCLE 1, IV
     Route: 042
     Dates: start: 20040120, end: 20040120
  2. CAMPTOSAR [Suspect]
     Indication: CERVIX CARCINOMA
     Dosage: 167 MG, EVERY 21 DAYS, CYCLE 1, IV
     Route: 042
     Dates: start: 20040120, end: 20040120
  3. COMPARATOR - CISPLATIN - INJECTION [Suspect]
     Indication: CERVIX CARCINOMA
     Dosage: 83.3 MG, EVERY 21 DAYS, CYCLE 1, IV
     Route: 042
     Dates: start: 20040120, end: 20040120
  4. COLACE (DOCUSATE SODIUM) [Concomitant]
  5. FLEET ENEMA (SODIUM PHOSPHATE DIBASIC) [Concomitant]
  6. FENTANYL [Concomitant]

REACTIONS (7)
  - ABDOMINAL PAIN LOWER [None]
  - ANOREXIA [None]
  - BACK PAIN [None]
  - DEHYDRATION [None]
  - MARKEDLY REDUCED DIETARY INTAKE [None]
  - NAUSEA [None]
  - VOMITING [None]
